FAERS Safety Report 15640393 (Version 1)
Quarter: 2018Q4

REPORT INFORMATION
  Report Type: Spontaneous
  Country: HU (occurrence: HU)
  Receive Date: 20181120
  Receipt Date: 20181120
  Transmission Date: 20190205
  Serious: Yes (Other)
  Sender: FDA-Public Use
  Company Number: PHHY2018HU157402

PATIENT

DRUGS (1)
  1. CATAFLAM DOLO [Suspect]
     Active Substance: DICLOFENAC POTASSIUM
     Indication: PRODUCT USED FOR UNKNOWN INDICATION
     Dosage: 50 MG, UNK IN TOTAL
     Route: 048

REACTIONS (5)
  - Altered state of consciousness [Recovered/Resolved]
  - Apathy [Recovered/Resolved]
  - Disorientation [Recovered/Resolved]
  - Retrograde amnesia [Unknown]
  - Aggression [Recovered/Resolved]
